FAERS Safety Report 19026970 (Version 2)
Quarter: 2021Q2

REPORT INFORMATION
  Report Type: Spontaneous
  Country: US (occurrence: US)
  Receive Date: 20210318
  Receipt Date: 20210630
  Transmission Date: 20210717
  Serious: Yes (Other)
  Sender: FDA-Public Use
  Company Number: US-MYLANLABS-2021M1015863

PATIENT
  Age: 3 Year
  Sex: Male

DRUGS (1)
  1. EPINEPHRINE INJECTION USP AUTO?INJECTOR [Suspect]
     Active Substance: EPINEPHRINE
     Indication: PRODUCT USED FOR UNKNOWN INDICATION
     Dosage: 0.3MG/3ML; AUTO?INJECTOR PUNCTURED INTO TONGUE

REACTIONS (5)
  - Tachycardia [Recovered/Resolved]
  - Vomiting [Recovered/Resolved]
  - Tongue haemorrhage [Recovered/Resolved]
  - Accidental exposure to product by child [Recovered/Resolved]
  - Wheezing [Recovered/Resolved]
